FAERS Safety Report 14315449 (Version 3)
Quarter: 2018Q4

REPORT INFORMATION
  Report Type: Spontaneous
  Country: US (occurrence: US)
  Receive Date: 20171221
  Receipt Date: 20181102
  Transmission Date: 20190204
  Serious: No
  Sender: FDA-Public Use
  Company Number: US-ACTELION-A-US2017-164512

PATIENT
  Age: 76 Year
  Sex: Female

DRUGS (22)
  1. OPSUMIT [Suspect]
     Active Substance: MACITENTAN
     Indication: PULMONARY ARTERIAL HYPERTENSION
     Dosage: 10 MG, UNK
     Route: 048
     Dates: start: 20140802
  2. PROBIOTIC [Concomitant]
     Active Substance: PROBIOTICS NOS
  3. FERROUS SULFATE. [Concomitant]
     Active Substance: FERROUS SULFATE
  4. NAPROXEN. [Concomitant]
     Active Substance: NAPROXEN
  5. GLIPIZIDE. [Concomitant]
     Active Substance: GLIPIZIDE
  6. METFORMIN [Concomitant]
     Active Substance: METFORMIN HYDROCHLORIDE
  7. TYLENOL [Concomitant]
     Active Substance: ACETAMINOPHEN
     Dosage: 500 MG, UNK
  8. HYCET [Concomitant]
     Active Substance: ACETAMINOPHEN\HYDROCODONE BITARTRATE
  9. COGENTIN [Concomitant]
     Active Substance: BENZTROPINE MESYLATE
  10. MECLIZINE HCL [Concomitant]
     Active Substance: MECLIZINE HYDROCHLORIDE
  11. MULTIVITAMIN [Concomitant]
     Active Substance: VITAMINS
  12. VENTOLIN [Concomitant]
     Active Substance: ALBUTEROL SULFATE
  13. DULERA [Concomitant]
     Active Substance: FORMOTEROL FUMARATE DIHYDRATE\MOMETASONE FUROATE
  14. NORVASC [Concomitant]
     Active Substance: AMLODIPINE BESYLATE
  15. FLUOXETINE [Concomitant]
     Active Substance: FLUOXETINE HYDROCHLORIDE
     Dosage: 10 MG, UNK
  16. SEROQUEL [Concomitant]
     Active Substance: QUETIAPINE FUMARATE
  17. SPIRIVA [Concomitant]
     Active Substance: TIOTROPIUM BROMIDE MONOHYDRATE
  18. SILDENAFIL. [Concomitant]
     Active Substance: SILDENAFIL
  19. XARELTO [Concomitant]
     Active Substance: RIVAROXABAN
  20. AMLODIPINE [Concomitant]
     Active Substance: AMLODIPINE BESYLATE
  21. ASPIRIN. [Concomitant]
     Active Substance: ASPIRIN
  22. BENZTROPINE. [Concomitant]
     Active Substance: BENZTROPINE

REACTIONS (5)
  - Diarrhoea [Not Recovered/Not Resolved]
  - Fatigue [Unknown]
  - Abdominal pain lower [Not Recovered/Not Resolved]
  - Amnesia [Unknown]
  - Product dose omission [Unknown]
